FAERS Safety Report 10176391 (Version 1)
Quarter: 2014Q2

REPORT INFORMATION
  Report Type: Report from Study
  Country: DE (occurrence: DE)
  Receive Date: 20140516
  Receipt Date: 20140516
  Transmission Date: 20141212
  Serious: Yes (Hospitalization)
  Sender: FDA-Public Use
  Company Number: PHHO2014DE006811

PATIENT
  Sex: 0

DRUGS (6)
  1. ACZ885 [Suspect]
     Indication: CARDIOVASCULAR DISORDER
     Dosage: 50 MG B, UNK
     Route: 058
     Dates: start: 20130104
  2. CLOMIPRAMINE [Suspect]
     Dosage: 75 MG, UNK
     Dates: end: 20140415
  3. ASPIRIN [Concomitant]
     Indication: CORONARY ARTERY DISEASE
     Dosage: 100 MG, UNK
     Dates: start: 20121103
  4. METFORMIN [Concomitant]
     Indication: DIABETES MELLITUS
     Dosage: 1700 MG, UNK
     Dates: start: 20130604
  5. METOPROLOL [Concomitant]
     Indication: CORONARY ARTERY DISEASE
     Dosage: 47.5 MG, UNK
     Dates: start: 20130705
  6. RAMIPRIL [Concomitant]
     Indication: CORONARY ARTERY DISEASE
     Dosage: 10 MG, UNK
     Dates: start: 20130604

REACTIONS (2)
  - Diarrhoea [Recovered/Resolved]
  - Hyponatraemia [Recovered/Resolved]
